FAERS Safety Report 6050678-4 (Version None)
Quarter: 2009Q1

REPORT INFORMATION
  Report Type: 
  Country: None (occurrence: None)
  Receive Date: 20090121
  Receipt Date: 20090105
  Transmission Date: 20090719
  Serious: Yes (Other)
  Sender: FDA-Public Use
  Company Number: 2009S1000244

PATIENT
  Sex: Male

DRUGS (2)
  1. BISOMERCK (BISOPROLOL) [Suspect]
     Indication: HYPERTENSION
     Dosage: ORAL
     Route: 048
  2. CONCOR [Concomitant]

REACTIONS (2)
  - PRURITUS [None]
  - SWELLING [None]
